FAERS Safety Report 9454972 (Version 1)
Quarter: 2013Q1

REPORT INFORMATION
  Report Type: Spontaneous
  Country: US (occurrence: None)
  Receive Date: 20120412
  Receipt Date: 20120412
  Transmission Date: 20140127
  Serious: Yes (Other)
  Sender: FDA-Public Use
  Company Number: 2012S1000008

PATIENT
  Age: 53 Year
  Sex: Male

DRUGS (6)
  1. KRYSTEXXA INJECTION [Suspect]
     Indication: GOUT
     Route: 042
     Dates: start: 20120118, end: 20120202
  2. SOLUMEDROL [Concomitant]
  3. BENADRYL /00945501/ [Concomitant]
  4. CYMBALTA [Concomitant]
  5. PRAVACHOL [Concomitant]
  6. PREDNISONE [Concomitant]

REACTIONS (1)
  - Anaphylactic shock [None]
